FAERS Safety Report 16259297 (Version 1)
Quarter: 2019Q2

REPORT INFORMATION
  Report Type: Spontaneous
  Country: US (occurrence: US)
  Receive Date: 20190326
  Receipt Date: 20190326
  Transmission Date: 20190711
  Serious: Yes (Life-Threatening, Hospitalization)
  Sender: FDA-Public Use
  Company Number: None

PATIENT
  Age: 67 Year
  Sex: Male
  Weight: 94.8 kg

DRUGS (1)
  1. APIXABAN [Suspect]
     Active Substance: APIXABAN
     Indication: PULMONARY EMBOLISM
     Route: 048
     Dates: start: 20181202, end: 20190205

REACTIONS (5)
  - Spinal compression fracture [None]
  - Spinal cord compression [None]
  - Chronic obstructive pulmonary disease [None]
  - Spinal cord haematoma [None]
  - Haemorrhage [None]

NARRATIVE: CASE EVENT DATE: 20190205
